FAERS Safety Report 5602848-4 (Version None)
Quarter: 2008Q1

REPORT INFORMATION
  Report Type: 
  Country: None (occurrence: None)
  Receive Date: 20080125
  Receipt Date: 20080115
  Transmission Date: 20080703
  Serious: Yes (Hospitalization)
  Sender: FDA-Public Use
  Company Number: DE-ABBOTT-07P-062-0431473-00

PATIENT
  Sex: Female
  Weight: 115 kg

DRUGS (6)
  1. HUMIRA [Suspect]
     Indication: PSORIATIC ARTHROPATHY
     Route: 058
     Dates: start: 20071001, end: 20071209
  2. HUMIRA [Suspect]
     Indication: PSORIASIS
  3. METHOTREXATE [Concomitant]
     Indication: PSORIATIC ARTHROPATHY
     Dates: start: 20050401, end: 20050901
  4. METHOTREXATE [Concomitant]
     Indication: PSORIASIS
     Dates: start: 20060301
  5. CYCLOSPORINE [Concomitant]
     Indication: PSORIASIS
     Dates: start: 20061001, end: 20061201
  6. CYCLOSPORINE [Concomitant]
     Indication: PSORIATIC ARTHROPATHY

REACTIONS (2)
  - PSORIASIS [None]
  - RASH MACULAR [None]
